FAERS Safety Report 22624145 (Version 1)
Quarter: 2023Q2

REPORT INFORMATION
  Report Type: Spontaneous
  Country: GB (occurrence: GB)
  Receive Date: 20230621
  Receipt Date: 20230621
  Transmission Date: 20230721
  Serious: Yes (Other)
  Sender: FDA-Public Use
  Company Number: GB-MYLANLABS-2023M1063701

PATIENT
  Age: 62 Year
  Sex: Female

DRUGS (1)
  1. PENICILLAMINE [Suspect]
     Active Substance: PENICILLAMINE
     Indication: Cystinuria
     Dosage: 1000 MILLIGRAM, QD
     Route: 065

REACTIONS (1)
  - Pseudoxanthoma elasticum [Recovered/Resolved]
